FAERS Safety Report 8382640-0 (Version None)
Quarter: 2012Q2

REPORT INFORMATION
  Report Type: 
  Country: None (occurrence: None)
  Receive Date: 20120524
  Receipt Date: 20120514
  Transmission Date: 20120825
  Serious: Yes (Hospitalization, Other)
  Sender: FDA-Public Use
  Company Number: IL-ELI_LILLY_AND_COMPANY-IL201205005282

PATIENT
  Sex: Female
  Weight: 86 kg

DRUGS (5)
  1. ESCITALOPRAM [Concomitant]
  2. CALCIUM [Concomitant]
  3. SIMVASTATIN [Concomitant]
  4. COUMADIN [Concomitant]
  5. FORTEO [Suspect]
     Indication: OSTEOPOROSIS
     Dosage: 20 UG, QD
     Route: 058
     Dates: start: 20120503

REACTIONS (2)
  - PULMONARY EMBOLISM [None]
  - LOSS OF CONSCIOUSNESS [None]
